FAERS Safety Report 4619361-3 (Version None)
Quarter: 2005Q2

REPORT INFORMATION
  Report Type: 
  Country: None (occurrence: None)
  Receive Date: 20050321
  Receipt Date: 20040324
  Transmission Date: 20051028
  Serious: Yes (Other)
  Sender: FDA-Public Use
  Company Number: 2004-03-1812

PATIENT
  Age: 51 Year
  Sex: Female

DRUGS (16)
  1. PEG-INTRON [Suspect]
     Indication: HEPATITIS C
     Dosage: 150 MCG SUBCUTANEOUS
     Route: 058
     Dates: start: 20040225
  2. REBETOL [Suspect]
     Indication: HEPATITIS C
     Dosage: 3 A+P ORAL
     Route: 048
     Dates: start: 20040225, end: 20040319
  3. LANTUS [Concomitant]
  4. AMERGE (NARATRIPTAN) TABLETS [Concomitant]
  5. VITAMIN B COMPLEX CAPSULES [Concomitant]
  6. COENZYME Q10 CAPSULES [Concomitant]
  7. COZAAR [Concomitant]
  8. LECITHIN CAPSULES [Concomitant]
  9. HERBAL MEDICATION NOS CAPSULES [Concomitant]
  10. MOTRIN [Concomitant]
  11. NOVOLOG (INSULIN ASPART) INJECTABLE SOLUTION [Concomitant]
  12. OMEGA-3 POLYUNSATURATED FATTY ACIDS CAPSULES [Concomitant]
  13. VITAMIN A CAPSULES [Concomitant]
  14. VITAMIN C TABLETS [Concomitant]
  15. VITAMINS/ MINERALS/ DIETARY SUPPLEMENTS (NOS) TABLETS [Concomitant]
  16. VITAMINS/ MINERALS/ DIETARY SUPPLEMENTS (NOS) CAPSULES [Concomitant]

REACTIONS (8)
  - ANAPHYLACTIC REACTION [None]
  - CELLULITIS [None]
  - COUGH [None]
  - DYSPNOEA [None]
  - HEADACHE [None]
  - NECK PAIN [None]
  - PSORIASIS [None]
  - RESPIRATORY DISORDER [None]
